FAERS Safety Report 4460507-8 (Version None)
Quarter: 2004Q3

REPORT INFORMATION
  Report Type: 
  Country: None (occurrence: None)
  Receive Date: 20040923
  Receipt Date: 20040920
  Transmission Date: 20050211
  Serious: Yes (Hospitalization)
  Sender: FDA-Public Use
  Company Number: MAG-2004-0000300

PATIENT
  Age: 73 Year
  Sex: Female

DRUGS (1)
  1. POVIDONE IODINE [Suspect]
     Indication: SURGERY
     Dosage: TOPICAL
     Route: 061
     Dates: start: 20040315, end: 20040315

REACTIONS (3)
  - ALLERGY TEST POSITIVE [None]
  - BRONCHOSPASM [None]
  - HYPOTENSION [None]
